FAERS Safety Report 7295463-0 (Version None)
Quarter: 2011Q1

REPORT INFORMATION
  Report Type: 
  Country: None (occurrence: None)
  Receive Date: 20110216
  Receipt Date: 20110118
  Transmission Date: 20110831
  Serious: No
  Sender: FDA-Public Use
  Company Number: US-ABBOTT-11P-163-0698773-00

PATIENT
  Sex: Female
  Weight: 79.45 kg

DRUGS (1)
  1. SIMCOR [Suspect]
     Indication: HYPERLIPIDAEMIA
     Dosage: 500/20MG
     Dates: end: 20110116

REACTIONS (3)
  - RASH MACULAR [None]
  - PRURITUS GENERALISED [None]
  - FLUSHING [None]
